FAERS Safety Report 5340974-8 (Version None)
Quarter: 2007Q2

REPORT INFORMATION
  Report Type: 
  Country: None (occurrence: None)
  Receive Date: 20070405
  Receipt Date: 20061208
  Transmission Date: 20071010
  Serious: No
  Sender: FDA-Public Use
  Company Number: US200607002883

PATIENT
  Age: 61 Year
  Sex: Female

DRUGS (13)
  1. CYMBALTA [Suspect]
     Indication: DEPRESSION
     Dosage: SEE IMAGE
     Dates: start: 20060707, end: 20060717
  2. CYMBALTA [Suspect]
     Indication: DEPRESSION
     Dosage: SEE IMAGE
     Dates: start: 20060718, end: 20061127
  3. CYMBALTA [Suspect]
     Indication: DEPRESSION
     Dosage: SEE IMAGE
     Dates: end: 20061127
  4. CYMBALTA [Suspect]
  5. CYMBALTA [Suspect]
  6. TRAZODONE HCL [Concomitant]
  7. ESTRACE [Concomitant]
  8. PROVERA [Concomitant]
  9. VITAMIN B COMPLEX (CALCIUM PANTOTHENATE, NICOTINAMIDE, PYRIDOXINE HYDR [Concomitant]
  10. VITAMIN E [Concomitant]
  11. CALCIUM MAGNESIUM ZINC                (CALCIUM, MAGNESIUM, ZINC) [Concomitant]
  12. COENZYME Q10 [Concomitant]
  13. GINKGO BILOBA                      (GINKGO BILOBA) [Concomitant]

REACTIONS (28)
  - ABDOMINAL DISTENSION [None]
  - ABNORMAL DREAMS [None]
  - ARTHROPOD BITE [None]
  - ASTHENIA [None]
  - BALANCE DISORDER [None]
  - CONSTIPATION [None]
  - CRYING [None]
  - DYSPHAGIA [None]
  - DYSURIA [None]
  - EYE PAIN [None]
  - EYE SWELLING [None]
  - FACE OEDEMA [None]
  - FATIGUE [None]
  - FEAR [None]
  - FEELING ABNORMAL [None]
  - HUNGER [None]
  - IRRITABILITY [None]
  - LYMPH NODE PAIN [None]
  - LYMPHADENOPATHY [None]
  - MICTURITION DISORDER [None]
  - NAUSEA [None]
  - NIGHTMARE [None]
  - PHARYNGOLARYNGEAL PAIN [None]
  - POLLAKIURIA [None]
  - PRURITUS GENERALISED [None]
  - SPLINTER [None]
  - THROAT TIGHTNESS [None]
  - VOMITING [None]
